FAERS Safety Report 14557429 (Version 1)
Quarter: 2018Q1

REPORT INFORMATION
  Report Type: Report from Study
  Country: US (occurrence: US)
  Receive Date: 20180221
  Receipt Date: 20180221
  Transmission Date: 20180509
  Serious: Yes (Other)
  Sender: FDA-Public Use
  Company Number: US-IPSEN BIOPHARMACEUTICALS, INC.-2017-08440

PATIENT
  Sex: Male
  Weight: 127 kg

DRUGS (5)
  1. TOPAMAX [Concomitant]
     Active Substance: TOPIRAMATE
  2. HYDROMORPHONE [Concomitant]
     Active Substance: HYDROMORPHONE
  3. DYSPORT [Suspect]
     Active Substance: ABOBOTULINUMTOXINA
     Indication: INTERVERTEBRAL DISC PROTRUSION
     Dosage: NOT REPORTED
     Route: 030
  4. DYSPORT [Suspect]
     Active Substance: ABOBOTULINUMTOXINA
     Indication: OFF LABEL USE
     Dosage: NOT REPORTED
     Route: 030
     Dates: start: 20170605, end: 20170605
  5. HYDROCODONE [Concomitant]
     Active Substance: HYDROCODONE

REACTIONS (5)
  - Nerve injury [Unknown]
  - Headache [Unknown]
  - Drug effect decreased [Unknown]
  - Off label use [Unknown]
  - Myosclerosis [Unknown]
